FAERS Safety Report 16351265 (Version 1)
Quarter: 2019Q2

REPORT INFORMATION
  Report Type: Spontaneous
  Country: FR (occurrence: FR)
  Receive Date: 20190524
  Receipt Date: 20190524
  Transmission Date: 20190711
  Serious: Yes (Hospitalization, Other)
  Sender: FDA-Public Use
  Company Number: FR-AUROBINDO-AUR-APL-2019-028746

PATIENT

DRUGS (3)
  1. PARACETAMOL [Suspect]
     Active Substance: ACETAMINOPHEN
     Indication: DENTAL CARE
     Dosage: 3 GRAM, ONCE A DAY
     Route: 048
     Dates: start: 201805, end: 201805
  2. PYOSTACINE [Suspect]
     Active Substance: PRISTINAMYCIN
     Indication: DENTAL CARE
     Dosage: UNK
     Route: 048
     Dates: start: 201805, end: 201805
  3. IBUPROFEN. [Suspect]
     Active Substance: IBUPROFEN
     Indication: DENTAL CARE
     Dosage: UNK, 1.6 ? 2,4 G/J
     Route: 048
     Dates: start: 201805, end: 201805

REACTIONS (1)
  - Drug-induced liver injury [Recovered/Resolved]

NARRATIVE: CASE EVENT DATE: 201805
